FAERS Safety Report 5605275-9 (Version None)
Quarter: 2008Q1

REPORT INFORMATION
  Report Type: 
  Country: None (occurrence: None)
  Receive Date: 20080129
  Receipt Date: 20080117
  Transmission Date: 20080703
  Serious: Yes (Disabling)
  Sender: FDA-Public Use
  Company Number: PT-PFIZER INC-2008006232

PATIENT
  Sex: Male
  Weight: 90 kg

DRUGS (5)
  1. CHANTIX [Suspect]
     Indication: SMOKING CESSATION THERAPY
     Dosage: DAILY DOSE:1MG
     Route: 048
  2. GABAPENTIN [Concomitant]
     Indication: ANXIETY
     Route: 048
  3. PROPRANOLOL [Concomitant]
     Indication: MIGRAINE PROPHYLAXIS
     Route: 048
  4. DIPOTASSIUM CLORAZEPATE [Concomitant]
     Indication: ANXIETY
     Route: 048
  5. FLUOXETINE [Concomitant]
     Indication: DEPRESSION
     Route: 048

REACTIONS (1)
  - DEPRESSION [None]
